FAERS Safety Report 8439530-4 (Version None)
Quarter: 2012Q2

REPORT INFORMATION
  Report Type: 
  Country: None (occurrence: None)
  Receive Date: 20120615
  Receipt Date: 20120611
  Transmission Date: 20120825
  Serious: Yes (Other)
  Sender: FDA-Public Use
  Company Number: US-PFIZER INC-2012138866

PATIENT
  Sex: Female
  Weight: 68.027 kg

DRUGS (1)
  1. ZYVOX [Suspect]
     Indication: STAPHYLOCOCCAL INFECTION
     Dosage: UNK, 2X/DAY
     Route: 048
     Dates: start: 20120330, end: 20120409

REACTIONS (4)
  - HYPOAESTHESIA [None]
  - COORDINATION ABNORMAL [None]
  - NECROTISING ULCERATIVE GINGIVOSTOMATITIS [None]
  - DYSGEUSIA [None]
